FAERS Safety Report 9648488 (Version 1)
Quarter: 2013Q4

REPORT INFORMATION
  Report Type: Spontaneous
  Country: US (occurrence: None)
  Receive Date: 20131024
  Receipt Date: 20131024
  Transmission Date: 20140711
  Serious: Yes (Other)
  Sender: FDA-Public Use
  Company Number: 2013SA104182

PATIENT
  Age: 52 Year
  Sex: Female

DRUGS (4)
  1. ICY HOT NO MESS [Suspect]
     Indication: NECK PAIN
     Dates: start: 20131010
  2. METHADONE [Concomitant]
  3. NORCO [Concomitant]
  4. CYMBALTA [Concomitant]

REACTIONS (6)
  - Chemical injury [None]
  - Pain [None]
  - Erythema [None]
  - Skin exfoliation [None]
  - Crying [None]
  - Tremor [None]
